FAERS Safety Report 6289046-9 (Version None)
Quarter: 2009Q3

REPORT INFORMATION
  Report Type: 
  Country: None (occurrence: None)
  Receive Date: 20090727
  Receipt Date: 20090715
  Transmission Date: 20100115
  Serious: Yes (Other)
  Sender: FDA-Public Use
  Company Number: IND1-AU-2009-0005

PATIENT
  Age: 49 Year
  Sex: Male

DRUGS (6)
  1. INDOMETHACIN [Suspect]
     Indication: PAIN
  2. IRBESARTAN [Suspect]
     Indication: ESSENTIAL HYPERTENSION
  3. PREZISTA (TABLETS) [Suspect]
     Indication: HIV INFECTION
     Dosage: 600 MG, ORAL
     Route: 048
     Dates: start: 20080925, end: 20081014
  4. RALTEGRAVIR [Suspect]
     Indication: HIV INFECTION
  5. RITONAVIR (RITONAVIT) (RITONAVIR) [Suspect]
     Indication: HIV INFECTION
  6. INTELENCE (TABLETS) [Concomitant]

REACTIONS (4)
  - DRUG INTERACTION [None]
  - FOCAL SEGMENTAL GLOMERULOSCLEROSIS [None]
  - NEPHROPATHY [None]
  - RENAL FAILURE ACUTE [None]
